FAERS Safety Report 8822270 (Version 1)
Quarter: 2012Q4

REPORT INFORMATION
  Report Type: 
  Country: FI (occurrence: FI)
  Receive Date: 20121003
  Receipt Date: 20121003
  Transmission Date: 20130627
  Serious: Yes (Other)
  Sender: FDA-Public Use
  Company Number: PHHY2012FI085202

PATIENT
  Age: 73 Year
  Sex: Female

DRUGS (7)
  1. AFINITOR [Suspect]
     Indication: PANCREATIC NEUROENDOCRINE TUMOUR METASTATIC
     Dosage: 10 mg/day
     Route: 048
     Dates: start: 20120604, end: 20120725
  2. METFORMIN [Concomitant]
     Dosage: 500 mg
  3. SOMAC [Concomitant]
     Dosage: 20 mg
     Route: 048
  4. SELOKEN ZOC [Concomitant]
     Dosage: 47.5 mg
     Route: 048
  5. THYROXIN [Concomitant]
     Dosage: 0.1 mg, QD
     Route: 048
  6. THYROXIN [Concomitant]
     Dosage: one and a half tablets per day on two days per week
  7. ZOPINOX [Concomitant]
     Dosage: 7.5 mg half a tablet once a day

REACTIONS (3)
  - Bone marrow oedema [Recovering/Resolving]
  - Joint swelling [Unknown]
  - Arthralgia [Not Recovered/Not Resolved]
